FAERS Safety Report 8069661-2 (Version None)
Quarter: 2012Q1

REPORT INFORMATION
  Report Type: 
  Country: None (occurrence: None)
  Receive Date: 20120125
  Receipt Date: 20120120
  Transmission Date: 20120608
  Serious: Yes (Other)
  Sender: FDA-Public Use
  Company Number: US-PFIZER INC-2012017207

PATIENT
  Sex: Female
  Weight: 72.562 kg

DRUGS (3)
  1. EFFEXOR XR [Suspect]
     Indication: DEPRESSION
     Dosage: 150 MG, 1X/DAY
     Route: 048
     Dates: start: 20110901, end: 20120101
  2. EFFEXOR XR [Suspect]
     Dosage: 300 MG, 1X/DAY
     Route: 048
     Dates: start: 20120101, end: 20120118
  3. SUBOXONE [Concomitant]
     Indication: DRUG DEPENDENCE
     Dosage: 8 MG, UNK

REACTIONS (5)
  - BALANCE DISORDER [None]
  - HEART RATE INCREASED [None]
  - SPEECH DISORDER [None]
  - DEPRESSION [None]
  - VISUAL IMPAIRMENT [None]
